FAERS Safety Report 19996722 (Version 1)
Quarter: 2021Q4

REPORT INFORMATION
  Report Type: Report from Study
  Country: None (occurrence: US)
  Receive Date: 20211026
  Receipt Date: 20211026
  Transmission Date: 20220303
  Serious: Yes (Other)
  Sender: FDA-Public Use
  Company Number: US-ABBVIE-21K-163-4130295-00

PATIENT
  Age: 62 Year
  Sex: Female

DRUGS (3)
  1. IMBRUVICA [Suspect]
     Active Substance: IBRUTINIB
     Indication: Chronic lymphocytic leukaemia
     Route: 048
     Dates: start: 20160105, end: 20170308
  2. IMBRUVICA [Suspect]
     Active Substance: IBRUTINIB
     Indication: B-cell small lymphocytic lymphoma
     Route: 048
     Dates: start: 20170528, end: 20170707
  3. PREDNISONE [Concomitant]
     Active Substance: PREDNISONE
     Indication: Pulmonary fibrosis
     Route: 048
     Dates: start: 20170426

REACTIONS (1)
  - Pulmonary fibrosis [Recovered/Resolved]

NARRATIVE: CASE EVENT DATE: 20170308
